FAERS Safety Report 7394698-6 (Version None)
Quarter: 2011Q2

REPORT INFORMATION
  Report Type: 
  Country: None (occurrence: None)
  Receive Date: 20110405
  Receipt Date: 20110321
  Transmission Date: 20111010
  Serious: Yes (Hospitalization)
  Sender: FDA-Public Use
  Company Number: PHHO2011PL05153

PATIENT
  Sex: Male
  Weight: 80 kg

DRUGS (12)
  1. LOKREN [Concomitant]
  2. AMLOZEK [Concomitant]
  3. UROSEPT [Concomitant]
  4. ZOFRAN [Concomitant]
  5. SUTENT [Concomitant]
  6. TIALORID [Concomitant]
  7. TANYZ (TAMSULOSIN) [Concomitant]
  8. ZOLEDRONIC ACID [Suspect]
     Dosage: UNK
     Dates: start: 20031118
  9. MS CONTIN [Concomitant]
  10. OMEPRAZOLE [Concomitant]
  11. ASPIRIN [Concomitant]
  12. PAMIDRONATE DISODIUM [Concomitant]

REACTIONS (1)
  - GINGIVAL PAIN [None]
